FAERS Safety Report 25410388 (Version 1)
Quarter: 2025Q2

REPORT INFORMATION
  Report Type: Spontaneous
  Country: US (occurrence: US)
  Receive Date: 20250608
  Receipt Date: 20250608
  Transmission Date: 20250717
  Serious: No
  Sender: SANOFI AVENTIS
  Company Number: US-SA-2025SA161163

PATIENT
  Sex: Male

DRUGS (14)
  1. DUPIXENT [Suspect]
     Active Substance: DUPILUMAB
     Indication: Dermatitis atopic
     Dosage: 300 MG, QOW
     Route: 058
  2. ACETAMINOPHEN [Concomitant]
     Active Substance: ACETAMINOPHEN
     Route: 048
  3. LUBIPROSTONE [Concomitant]
     Active Substance: LUBIPROSTONE
     Route: 048
  4. PANTOPRAZOLE [Concomitant]
     Active Substance: PANTOPRAZOLE
     Route: 048
  5. ANASTROZOLE [Concomitant]
     Active Substance: ANASTROZOLE
     Route: 048
  6. ARMOUR THYROID [Concomitant]
     Active Substance: THYROID, PORCINE
     Route: 048
  7. DUTASTERIDE [Concomitant]
     Active Substance: DUTASTERIDE
     Route: 048
  8. ELIQUIS [Concomitant]
     Active Substance: APIXABAN
     Route: 048
  9. ONDANSETRON [Concomitant]
     Active Substance: ONDANSETRON
  10. OXYCODONE HYDROCHLORIDE [Concomitant]
     Active Substance: OXYCODONE HYDROCHLORIDE
     Route: 048
  11. PREGABALIN [Concomitant]
     Active Substance: PREGABALIN
     Route: 048
  12. TADALAFIL [Concomitant]
     Active Substance: TADALAFIL
     Route: 048
  13. TESTOSTERONE [Concomitant]
     Active Substance: TESTOSTERONE
  14. LUBIPROSTONE [Concomitant]
     Active Substance: LUBIPROSTONE
     Route: 048

REACTIONS (3)
  - Headache [Unknown]
  - Ear pain [Unknown]
  - Oropharyngeal pain [Unknown]
